FAERS Safety Report 4875077-X (Version None)
Quarter: 2006Q1

REPORT INFORMATION
  Report Type: 
  Country: None (occurrence: None)
  Receive Date: 20060109
  Receipt Date: 20051107
  Transmission Date: 20060701
  Serious: Yes (Other)
  Sender: FDA-Public Use
  Company Number: US-GLAXOSMITHKLINE-A0581274A

PATIENT
  Age: 65 Year
  Sex: Female

DRUGS (6)
  1. ADVAIR DISKUS 250/50 [Suspect]
     Dosage: 1PUFF PER DAY
     Route: 055
     Dates: start: 20050501, end: 20050830
  2. PREMARIN [Concomitant]
  3. SYNTHROID [Concomitant]
  4. ROBINUL [Concomitant]
  5. PEPCID [Concomitant]
  6. INTERFERON [Concomitant]

REACTIONS (3)
  - INTERVERTEBRAL DISC DEGENERATION [None]
  - OSTEOPOROSIS [None]
  - PAIN [None]
